FAERS Safety Report 24066487 (Version 1)
Quarter: 2024Q3

REPORT INFORMATION
  Report Type: Spontaneous
  Country: FR (occurrence: None)
  Receive Date: 20240709
  Receipt Date: 20240709
  Transmission Date: 20241016
  Serious: Yes (Death, Other)
  Sender: ASTRAZENECA
  Company Number: 2024A156183

PATIENT
  Sex: Male
  Weight: 62 kg

DRUGS (1)
  1. DURVALUMAB [Suspect]
     Active Substance: DURVALUMAB
     Indication: Non-small cell lung cancer
     Route: 042

REACTIONS (5)
  - Death [Fatal]
  - Haematotoxicity [Unknown]
  - Oesophagitis [Unknown]
  - Nausea [Unknown]
  - Vomiting [Unknown]
